FAERS Safety Report 9743189 (Version 2)
Quarter: 2013Q4

REPORT INFORMATION
  Report Type: Spontaneous
  Country: US (occurrence: US)
  Receive Date: 20131210
  Receipt Date: 20131210
  Transmission Date: 20140711
  Serious: Yes (Hospitalization)
  Sender: FDA-Public Use
  Company Number: US-GILEAD-2009-0024884

PATIENT
  Sex: Female

DRUGS (13)
  1. LETAIRIS [Suspect]
     Indication: PULMONARY ARTERIAL HYPERTENSION
     Route: 048
     Dates: start: 20090421
  2. REVATIO [Concomitant]
  3. WARFARIN [Concomitant]
  4. LASIX [Concomitant]
  5. METOLAZONE [Concomitant]
  6. COREG [Concomitant]
  7. MULTAQ [Concomitant]
  8. EXFORGE [Concomitant]
  9. FLURAZEPAM [Concomitant]
  10. VYTORIN [Concomitant]
  11. SYNTHROID [Concomitant]
  12. COMBIVENT [Concomitant]
  13. VICODIN [Concomitant]

REACTIONS (2)
  - Ascites [Recovered/Resolved]
  - Oedema [Recovered/Resolved]
